FAERS Safety Report 6283768-1 (Version None)
Quarter: 2009Q3

REPORT INFORMATION
  Report Type: 
  Country: None (occurrence: None)
  Receive Date: 20090724
  Receipt Date: 20070816
  Transmission Date: 20100115
  Serious: Yes (Other)
  Sender: FDA-Public Use
  Company Number: US-ASTRAZENECA-2006UW27741

PATIENT
  Age: 55 Year
  Sex: Female
  Weight: 102.5 kg

DRUGS (26)
  1. SEROQUEL [Suspect]
     Indication: BIPOLAR DISORDER
     Dosage: 25-600 MG
     Route: 048
     Dates: start: 20030317
  2. SEROQUEL [Suspect]
     Indication: DEPRESSION
     Dosage: 25-600 MG
     Route: 048
     Dates: start: 20030317
  3. GEODON [Concomitant]
     Dates: start: 20060801, end: 20070301
  4. ABILIFY [Concomitant]
     Dates: start: 20070101
  5. TRAZODONE HCL [Concomitant]
     Dosage: 100-150 MG
     Dates: start: 20030116
  6. TRAZODONE HCL [Concomitant]
     Dosage: 25-50 MG
  7. CYMBALTA [Concomitant]
  8. AMBIEN [Concomitant]
  9. POTOMAX [Concomitant]
  10. VIOXX [Concomitant]
     Dates: start: 20030317
  11. PROTONIX [Concomitant]
     Dates: start: 20030131
  12. LISINOPRIL [Concomitant]
     Dates: start: 20030618
  13. ZYRTEC [Concomitant]
     Dates: start: 20050113
  14. PROZAC [Concomitant]
     Dates: start: 20050113
  15. ZOCOR [Concomitant]
     Dates: start: 20060817
  16. ARTHROTEC [Concomitant]
     Dates: start: 20050113
  17. HYDROCHLOROTHIAZIDE [Concomitant]
     Dates: start: 20050113
  18. RESTORIL [Concomitant]
     Indication: INSOMNIA
     Dates: start: 20060817
  19. KETOCONAZOLE [Concomitant]
     Dates: start: 20050113
  20. ALBUTEROL [Concomitant]
     Dates: start: 20050113
  21. ADVAIR HFA [Concomitant]
     Dates: start: 20050113
  22. LIPITOR [Concomitant]
     Dates: start: 20050113
  23. DOCUSATE [Concomitant]
     Dates: start: 20050113
  24. CARBAMAZEPINE [Concomitant]
     Dates: start: 20030618
  25. NEURONTIN [Concomitant]
     Dates: start: 20030618
  26. WELLBUTRIN [Concomitant]
     Dates: start: 20030618

REACTIONS (6)
  - BLOOD CHOLESTEROL INCREASED [None]
  - DIABETES MELLITUS [None]
  - DIABETIC NEUROPATHY [None]
  - OBESITY [None]
  - TYPE 1 DIABETES MELLITUS [None]
  - TYPE 2 DIABETES MELLITUS [None]
